FAERS Safety Report 5160441-4 (Version None)
Quarter: 2006Q4

REPORT INFORMATION
  Report Type: 
  Country: None (occurrence: None)
  Receive Date: 20061121
  Receipt Date: 20061108
  Transmission Date: 20070319
  Serious: Yes (Other)
  Sender: FDA-Public Use
  Company Number: 229877

PATIENT
  Age: 35 Year
  Sex: Female
  Weight: 93 kg

DRUGS (9)
  1. RITUXIMAB OR PLACEBO (RITUXIMAB) CONC FOR SOLUTION FOR INFUSION [Suspect]
     Indication: RHEUMATOID ARTHRITIS
     Dosage: 1000 MG, X2, INTRAVENOUS
     Route: 042
     Dates: start: 20060912
  2. SOLU-MEDROL [Suspect]
     Indication: RHEUMATOID ARTHRITIS
     Dosage: 100 MG, SINGLE, INTRAVENOUS
     Route: 042
     Dates: start: 20060912
  3. ACETAMINOPHEN [Concomitant]
  4. IBUPROFEN [Concomitant]
  5. FOLIC ACID [Concomitant]
  6. METHOTREXATE [Concomitant]
  7. ALESSE (ETHINYL ESTRADIOL, LEONORGESTREL) [Concomitant]
  8. SLOW FE (FERROUS SULFATE) [Concomitant]
  9. NAPROXEN [Concomitant]

REACTIONS (8)
  - BODY TEMPERATURE INCREASED [None]
  - CONDITION AGGRAVATED [None]
  - HEADACHE [None]
  - MUSCULOSKELETAL STIFFNESS [None]
  - PHOTOSENSITIVITY REACTION [None]
  - RHEUMATOID ARTHRITIS [None]
  - STOMACH DISCOMFORT [None]
  - VOMITING [None]
